FAERS Safety Report 15813301 (Version 2)
Quarter: 2019Q1

REPORT INFORMATION
  Report Type: Spontaneous
  Country: US (occurrence: US)
  Receive Date: 20190111
  Receipt Date: 20190125
  Transmission Date: 20190417
  Serious: Yes (Life-Threatening, Hospitalization, Other)
  Sender: FDA-Public Use
  Company Number: US-HIKMA PHARMACEUTICALS USA INC.-US-H14001-19-00048

PATIENT
  Age: 57 Year
  Sex: Female

DRUGS (1)
  1. CAPECITABINE. [Suspect]
     Active Substance: CAPECITABINE
     Indication: INVASIVE DUCTAL BREAST CARCINOMA
     Route: 065
     Dates: start: 2016

REACTIONS (15)
  - Mental status changes [Recovered/Resolved]
  - Rash [Recovering/Resolving]
  - Ventricular tachycardia [Unknown]
  - Neurotoxicity [Recovered/Resolved]
  - Nausea [Unknown]
  - Lethargy [Recovered/Resolved]
  - Swelling face [Recovering/Resolving]
  - Pancytopenia [Recovering/Resolving]
  - Enterocolitis haemorrhagic [Recovered/Resolved]
  - Febrile neutropenia [Recovered/Resolved]
  - Lip swelling [Recovering/Resolving]
  - Stomatitis [Recovered/Resolved]
  - Vomiting [Unknown]
  - Osmotic demyelination syndrome [Recovered/Resolved]
  - Confusional state [Recovered/Resolved]

NARRATIVE: CASE EVENT DATE: 2016
